FAERS Safety Report 8100413-0 (Version None)
Quarter: 2012Q1

REPORT INFORMATION
  Report Type: 
  Country: None (occurrence: None)
  Receive Date: 20120129
  Receipt Date: 20111227
  Transmission Date: 20120608
  Serious: No
  Sender: FDA-Public Use
  Company Number: US-ABBOTT-11P-163-0866997-00

PATIENT
  Age: 62 Year
  Sex: Female

DRUGS (22)
  1. AMOXICILLIN [Suspect]
     Indication: PRODUCT USED FOR UNKNOWN INDICATION
     Dates: start: 20111001
  2. HUMIRA [Suspect]
     Dates: start: 20111118
  3. CALCIUM CALTRATE [Concomitant]
     Indication: PRODUCT USED FOR UNKNOWN INDICATION
  4. MULTI-VITAMINS [Concomitant]
     Indication: PRODUCT USED FOR UNKNOWN INDICATION
  5. HUMIRA [Suspect]
     Indication: RHEUMATOID ARTHRITIS
     Dates: start: 20110825
  6. METOPROLOL TARTRATE [Concomitant]
     Indication: BLOOD PRESSURE
     Dosage: 100 MG ONCE TWICE DAILY
  7. PREDNISONE TAB [Concomitant]
     Indication: PRODUCT USED FOR UNKNOWN INDICATION
     Dosage: 5 MG ONE AND ONE HALF DAILY
  8. ZANTAC [Concomitant]
     Indication: PRODUCT USED FOR UNKNOWN INDICATION
     Dosage: 150 MG ONCE DAILY
  9. TRICOR [Concomitant]
     Indication: BLOOD CHOLESTEROL INCREASED
     Dosage: 145 MG ONE DAILY
  10. PREMPRO [Concomitant]
     Indication: PRODUCT USED FOR UNKNOWN INDICATION
  11. ALBUTEROL [Concomitant]
     Indication: PRODUCT USED FOR UNKNOWN INDICATION
     Route: 055
  12. SPIRIVA [Concomitant]
     Indication: PRODUCT USED FOR UNKNOWN INDICATION
     Route: 055
  13. HUMIRA [Suspect]
     Dosage: 40 MG EVERY OTHER WEEK
     Dates: start: 20050101, end: 20060101
  14. DIAZEPAM [Concomitant]
     Indication: PRODUCT USED FOR UNKNOWN INDICATION
     Dosage: 2 MG ONCE IN THE AM AND TWO AT BEDTIME
  15. CETIRIZINE [Concomitant]
     Indication: SINUS DISORDER
     Dosage: 10 MG ONCE DAILY
  16. TYLENOL W/ CODEINE [Concomitant]
     Indication: PAIN
     Dosage: 300/30MG: TWO-FOUR DAILY AS NEEDED
  17. LEFLUNOMIDE [Concomitant]
     Indication: ARTHRITIS
     Dosage: 20 MG ONCE DAILY
  18. OXYCODONE HCL [Concomitant]
     Indication: PAIN
     Dosage: AS NEEDED
  19. TRAZODONE HCL [Concomitant]
     Indication: INSOMNIA
     Dosage: 50 MG: ONE HALF AT BEDTIME
  20. FISH OIL [Concomitant]
     Indication: PRODUCT USED FOR UNKNOWN INDICATION
     Dosage: 1000 MG ONCE DAILY
  21. EFFEXOR [Concomitant]
     Indication: PRODUCT USED FOR UNKNOWN INDICATION
     Dosage: ONCE DAILY
  22. VITAMIN B COMPLEX CAP [Concomitant]
     Indication: PRODUCT USED FOR UNKNOWN INDICATION

REACTIONS (6)
  - DRUG INEFFECTIVE [None]
  - ABDOMINAL DISCOMFORT [None]
  - DYSPHONIA [None]
  - BRONCHITIS [None]
  - COUGH [None]
  - LUNG NEOPLASM [None]
